FAERS Safety Report 9362737 (Version 2)
Quarter: 2013Q3

REPORT INFORMATION
  Report Type: Spontaneous
  Country: US (occurrence: US)
  Receive Date: 20130622
  Receipt Date: 20130807
  Transmission Date: 20140515
  Serious: Yes (Hospitalization, Other)
  Sender: FDA-Public Use
  Company Number: US-ASTRAZENECA-2013SE40649

PATIENT
  Age: 67 Year
  Sex: Female
  Weight: 47.6 kg

DRUGS (8)
  1. BUDESONIDE [Suspect]
     Indication: COLITIS ULCERATIVE
     Route: 048
     Dates: start: 201302, end: 201305
  2. BUDESONIDE [Suspect]
     Indication: COLITIS ULCERATIVE
     Dosage: DOSE TAPERED
     Route: 048
     Dates: end: 201305
  3. BUDESONIDE [Suspect]
     Indication: COLITIS ULCERATIVE
     Dosage: 3 MG THREE TIMES A DAY (PAR PHARMA)
     Route: 048
     Dates: start: 201305
  4. BUDESONIDE [Suspect]
     Indication: COLITIS ULCERATIVE
     Route: 048
  5. BUDESONIDE [Suspect]
     Indication: COLITIS ULCERATIVE
     Dosage: 3 MG THREE TIMES A DAY
     Route: 048
     Dates: start: 201305
  6. BUDESONIDE [Suspect]
     Indication: COLITIS ULCERATIVE
     Dosage: 3 MG THREE TIMES A DAY (PAR PHARMA)
     Route: 048
     Dates: start: 201305
  7. UNKNOWN DRUGS [Concomitant]
  8. FOLIC ACID [Concomitant]

REACTIONS (10)
  - Amnesia [Unknown]
  - Diarrhoea [Unknown]
  - Diarrhoea [Unknown]
  - Gastrointestinal disorder [Unknown]
  - Iron deficiency [Unknown]
  - Colitis microscopic [Unknown]
  - Adverse event [Unknown]
  - Visual impairment [Unknown]
  - Muscle spasms [Unknown]
  - Drug ineffective [Unknown]
